FAERS Safety Report 4679744-2 (Version None)
Quarter: 2005Q2

REPORT INFORMATION
  Report Type: 
  Country: None (occurrence: None)
  Receive Date: 20050602
  Receipt Date: 20050523
  Transmission Date: 20051028
  Serious: Yes (Life-Threatening)
  Sender: FDA-Public Use
  Company Number: FR-ROCHE-405503

PATIENT
  Age: 80 Year
  Sex: Male

DRUGS (6)
  1. APRANAX [Suspect]
     Indication: DRUG USE FOR UNKNOWN INDICATION
     Route: 048
  2. APROVEL [Interacting]
     Indication: DRUG USE FOR UNKNOWN INDICATION
     Route: 048
  3. DIFFU-K [Interacting]
     Indication: DRUG USE FOR UNKNOWN INDICATION
     Route: 048
  4. ALDACTONE [Interacting]
     Indication: DRUG USE FOR UNKNOWN INDICATION
     Route: 048
  5. LASILIX [Concomitant]
     Route: 065
  6. DIAMICRON [Concomitant]
     Route: 048

REACTIONS (8)
  - ARRHYTHMIA [None]
  - BLOOD PH DECREASED [None]
  - DIALYSIS [None]
  - DRUG INTERACTION [None]
  - HYPERKALAEMIA [None]
  - RENAL FAILURE [None]
  - RESPIRATORY DISTRESS [None]
  - TACHYCARDIA [None]
